FAERS Safety Report 7088952-5 (Version None)
Quarter: 2010Q4

REPORT INFORMATION
  Report Type: 
  Country: None (occurrence: None)
  Receive Date: 20101029
  Receipt Date: 20101019
  Transmission Date: 20110411
  Serious: Yes (Disabling)
  Sender: FDA-Public Use
  Company Number: OSCN-NO-0604S-0114

PATIENT
  Age: 68 Year
  Sex: Female

DRUGS (2)
  1. OMNISCAN [Suspect]
     Indication: PRODUCT USED FOR UNKNOWN INDICATION
     Dosage: 30 ML, SINGLE DOSE, I.V. 30 ML, SINGLE DOSE, I.V.
     Route: 042
     Dates: start: 20010507, end: 20010507
  2. OMNISCAN [Suspect]
     Indication: PRODUCT USED FOR UNKNOWN INDICATION
     Dosage: 30 ML, SINGLE DOSE, I.V. 30 ML, SINGLE DOSE, I.V.
     Route: 042
     Dates: start: 20051201, end: 20051201

REACTIONS (2)
  - DIZZINESS [None]
  - NEPHROGENIC SYSTEMIC FIBROSIS [None]
